FAERS Safety Report 24388804 (Version 6)
Quarter: 2025Q3

REPORT INFORMATION
  Report Type: Report from Study
  Country: AR (occurrence: AR)
  Receive Date: 20241002
  Receipt Date: 20250911
  Transmission Date: 20251020
  Serious: Yes (Hospitalization)
  Sender: NOVARTIS
  Company Number: AR-002147023-NVSC2024AR185827

PATIENT
  Age: 85 Year
  Sex: Female
  Weight: 65 kg

DRUGS (1)
  1. COSENTYX [Suspect]
     Active Substance: SECUKINUMAB
     Indication: Axial spondyloarthritis
     Dosage: 150 MG, QMO
     Route: 058
     Dates: start: 20221104, end: 20240726

REACTIONS (16)
  - Fall [Recovering/Resolving]
  - Rib fracture [Recovering/Resolving]
  - Head injury [Unknown]
  - Influenza [Recovered/Resolved]
  - Cough [Unknown]
  - Pyrexia [Unknown]
  - Pain [Unknown]
  - Pulmonary pain [Unknown]
  - Dyspnoea [Unknown]
  - Abdominal pain upper [Unknown]
  - Malaise [Unknown]
  - Eating disorder [Unknown]
  - Bone pain [Unknown]
  - Depression [Unknown]
  - Anaemia [Unknown]
  - Gait inability [Unknown]

NARRATIVE: CASE EVENT DATE: 20240504
